FAERS Safety Report 9267816 (Version 2)
Quarter: 2014Q2

REPORT INFORMATION
  Report Type: Report from Study
  Country: US (occurrence: US)
  Receive Date: 20130502
  Receipt Date: 20140630
  Transmission Date: 20141212
  Serious: Yes (Hospitalization)
  Sender: FDA-Public Use
  Company Number: US-ALEXION-A201201122

PATIENT
  Sex: 0

DRUGS (3)
  1. SOLIRIS [Suspect]
     Indication: PAROXYSMAL NOCTURNAL HAEMOGLOBINURIA
     Dosage: 900 MG, Q2W
     Route: 042
  2. OXYCONTIN [Concomitant]
     Indication: PAIN
     Dosage: 80 MG, BID
     Route: 048
  3. DILAUDID [Concomitant]
     Indication: PAIN
     Dosage: 4 MG, QD (1 TO 3 TABS PRN)
     Route: 048

REACTIONS (1)
  - Aplastic anaemia [Recovering/Resolving]
